FAERS Safety Report 6911356-X (Version None)
Quarter: 2010Q3

REPORT INFORMATION
  Report Type: 
  Country: None (occurrence: None)
  Receive Date: 20100806
  Receipt Date: 20100803
  Transmission Date: 20110219
  Serious: Yes (Other)
  Sender: FDA-Public Use
  Company Number: US-BRISTOL-MYERS SQUIBB COMPANY-15224330

PATIENT
  Age: 76 Year
  Sex: Male
  Weight: 100 kg

DRUGS (5)
  1. COUMADIN [Suspect]
  2. CELEBREX [Suspect]
     Indication: MUSCULOSKELETAL PAIN
     Dates: start: 20100701
  3. HYDROCHLOROTHIAZIDE [Concomitant]
     Indication: HYPERTENSION
  4. LOSARTAN [Concomitant]
     Indication: HYPERTENSION
  5. VERAPAMIL [Concomitant]
     Indication: HYPERTENSION

REACTIONS (3)
  - DRUG LEVEL INCREASED [None]
  - PRURITUS GENERALISED [None]
  - RASH [None]
